FAERS Safety Report 10203541 (Version 1)
Quarter: 2014Q2

REPORT INFORMATION
  Report Type: Report from Study
  Country: US (occurrence: US)
  Receive Date: 20140529
  Receipt Date: 20140529
  Transmission Date: 20141212
  Serious: Yes (Other)
  Sender: FDA-Public Use
  Company Number: US-009507513-1405USA013267

PATIENT
  Sex: 0

DRUGS (4)
  1. REBETOL [Suspect]
     Indication: HEPATITIS C
     Dosage: 1000MG OR 1200MG DAILY DIVIDED BID
  2. ABT-333 [Suspect]
     Indication: HEPATITIS C
     Dosage: 250 MG, BID
  3. ABT-267 [Suspect]
     Indication: HEPATITIS C
     Dosage: 25 MG, QD
  4. RITONAVIR [Suspect]
     Indication: HEPATITIS C
     Dosage: 100 MG, QD

REACTIONS (1)
  - Anaemia [Unknown]
